FAERS Safety Report 6397630-7 (Version None)
Quarter: 2009Q4

REPORT INFORMATION
  Report Type: 
  Country: None (occurrence: None)
  Receive Date: 20091012
  Receipt Date: 20091002
  Transmission Date: 20100525
  Serious: Yes (Hospitalization, Other)
  Sender: FDA-Public Use
  Company Number: PHHY2009BR42714

PATIENT
  Sex: Male

DRUGS (8)
  1. FORASEQ [Suspect]
     Indication: DYSPNOEA
     Dosage: TWICE A DAY
  2. FORASEQ [Suspect]
     Dosage: ONCE A DAY
  3. BUDECORT [Concomitant]
     Indication: RHINITIS
     Route: 045
  4. ENALAPRIL MALEATE [Concomitant]
     Indication: HYPERTENSION
     Route: 048
  5. SELOZOK [Concomitant]
     Indication: HYPERTENSION
     Route: 048
  6. SIMVASTATIN [Concomitant]
     Indication: BLOOD CHOLESTEROL
     Dosage: 20 MG ONE TABLETS AT NIGHT
     Route: 048
  7. LASIX [Concomitant]
     Indication: HYPERTENSION
     Dosage: 40 MG
     Route: 048
  8. ACETYLSALICYLIC ACID [Concomitant]
     Dosage: 100 MG, TWO TABLETS IN LUNCH
     Route: 048

REACTIONS (4)
  - ANGIOPATHY [None]
  - DIVERTICULITIS [None]
  - DYSPNOEA [None]
  - PLEURAL EFFUSION [None]
